FAERS Safety Report 5258690-X (Version None)
Quarter: 2007Q1

REPORT INFORMATION
  Report Type: 
  Country: None (occurrence: None)
  Receive Date: 20061117
  Receipt Date: 20060807
  Transmission Date: 20070707
  Serious: Yes (Other)
  Sender: FDA-Public Use
  Company Number: US-JNJFOC-20060802048

PATIENT
  Age: 61 Year
  Sex: Male
  Weight: 108.8633 kg

DRUGS (11)
  1. LEVAQUIN [Suspect]
     Indication: PROSTATITIS
     Dates: start: 20020101
  2. LEVAQUIN [Suspect]
     Indication: PROSTATITIS
     Dates: start: 20040101
  3. COZAAR [Concomitant]
  4. HYTRIN [Concomitant]
  5. ALTACE [Concomitant]
  6. LIPITOR [Concomitant]
  7. ZETA (CHOLESTEROL- AND TRIGLYCERIDE REDUCERS) [Concomitant]
  8. ASPIRIN [Concomitant]
  9. ADVAIR (SERETIDE MITE) [Concomitant]
  10. SEREVENT [Concomitant]
  11. SPIREVA (ALL OTHER THERAPEUTIC PRODUCTS) [Concomitant]

REACTIONS (2)
  - TENDON RUPTURE [None]
  - TENDONITIS [None]
